FAERS Safety Report 5128752-6 (Version None)
Quarter: 2006Q4

REPORT INFORMATION
  Report Type: 
  Country: None (occurrence: None)
  Receive Date: 20061011
  Receipt Date: 20060920
  Transmission Date: 20070319
  Serious: Yes (Death, Hospitalization)
  Sender: FDA-Public Use
  Company Number: US200609005162

PATIENT
  Age: 62 Year
  Sex: Female

DRUGS (1)
  1. ILETIN [Suspect]
     Indication: DIABETES MELLITUS
     Dates: start: 19280101, end: 19630101

REACTIONS (3)
  - HIP FRACTURE [None]
  - PHARMACEUTICAL PRODUCT COMPLAINT [None]
  - PNEUMONIA [None]
